FAERS Safety Report 8233811-5 (Version None)
Quarter: 2012Q1

REPORT INFORMATION
  Report Type: 
  Country: None (occurrence: None)
  Receive Date: 20120326
  Receipt Date: 20120316
  Transmission Date: 20120608
  Serious: Yes (Hospitalization)
  Sender: FDA-Public Use
  Company Number: JP-ASTELLAS-2012JP002285

PATIENT
  Sex: Female

DRUGS (8)
  1. VESICARE [Suspect]
     Indication: HYPERTONIC BLADDER
     Dosage: 2.5 MG, UNKNOWN/D
     Route: 033
     Dates: start: 20120127, end: 20120301
  2. ALDACTONE [Concomitant]
     Dosage: 25 MG, UNKNOWN/D
     Route: 033
     Dates: start: 20120127
  3. WARFARIN SODIUM [Concomitant]
     Dosage: 2 MG, UNKNOWN/D
     Route: 033
     Dates: start: 20120127
  4. ALOSENN [Concomitant]
     Dosage: 0.5 G, UNKNOWN/D
     Route: 033
     Dates: start: 20120127
  5. ATELEC [Concomitant]
     Dosage: 20 MG, UNKNOWN/D
     Route: 033
     Dates: start: 20120127
  6. FAMOTIDINE [Concomitant]
     Dosage: 20 MG, UNKNOWN/D
     Route: 033
     Dates: start: 20120127
  7. VERAPAMIL HCL [Suspect]
     Dosage: 80 MG, UNKNOWN/D
     Route: 014
     Dates: start: 20120127, end: 20120301
  8. MAGNESIUM CHLORIDE [Concomitant]
     Dosage: 2 G, UNKNOWN/D
     Route: 033
     Dates: start: 20120127

REACTIONS (1)
  - BRADYCARDIA [None]
